FAERS Safety Report 11510448 (Version 2)
Quarter: 2015Q4

REPORT INFORMATION
  Report Type: Spontaneous
  Country: US (occurrence: US)
  Receive Date: 20150915
  Receipt Date: 20151028
  Transmission Date: 20160304
  Serious: Yes (Other)
  Sender: FDA-Public Use
  Company Number: US-GLAXOSMITHKLINE-US2015GSK130824

PATIENT
  Age: 52 Year
  Sex: Female

DRUGS (2)
  1. ADVAIR HFA [Suspect]
     Active Substance: FLUTICASONE PROPIONATE\SALMETEROL XINAFOATE
     Indication: CHRONIC OBSTRUCTIVE PULMONARY DISEASE
     Dosage: 500/50 MCG UNK PUFFS, U
     Route: 065
     Dates: start: 2001
  2. ADVAIR HFA [Suspect]
     Active Substance: FLUTICASONE PROPIONATE\SALMETEROL XINAFOATE
     Dosage: UNK, U
     Route: 065

REACTIONS (15)
  - Drug ineffective [Unknown]
  - Skin atrophy [Not Recovered/Not Resolved]
  - Spinal fracture [Unknown]
  - Hernia hiatus repair [Unknown]
  - Allergy to metals [Not Recovered/Not Resolved]
  - Laceration [Not Recovered/Not Resolved]
  - Dizziness [Unknown]
  - Skin lesion [Unknown]
  - Apparent death [Recovered/Resolved]
  - Vertigo [Unknown]
  - Loss of consciousness [Unknown]
  - Fall [Unknown]
  - Expired product administered [Unknown]
  - Gallbladder operation [Unknown]
  - Back pain [Unknown]

NARRATIVE: CASE EVENT DATE: 2001
